FAERS Safety Report 5052156-8 (Version None)
Quarter: 2006Q3

REPORT INFORMATION
  Report Type: 
  Country: None (occurrence: None)
  Receive Date: 20060714
  Receipt Date: 20060714
  Transmission Date: 20061208
  Serious: Yes (Disabling)
  Sender: FDA-Public Use
  Company Number: None

PATIENT
  Age: 45 Year
  Sex: Female

DRUGS (1)
  1. OMNIPAQUE 350 [Suspect]
     Indication: ABDOMINAL PAIN
     Dosage: 350 MG ONE TIME IV
     Route: 042
     Dates: start: 20060621, end: 20060621

REACTIONS (4)
  - COUGH [None]
  - FEELING ABNORMAL [None]
  - FLUSHING [None]
  - PRURITUS [None]
